FAERS Safety Report 17717184 (Version 1)
Quarter: 2020Q2

REPORT INFORMATION
  Report Type: Spontaneous
  Country: US (occurrence: US)
  Receive Date: 20200428
  Receipt Date: 20200428
  Transmission Date: 20200714
  Serious: Yes (Hospitalization)
  Sender: FDA-Public Use
  Company Number: US-EMCURE PHARMACEUTICALS LTD-2020-EPL-000477

PATIENT
  Age: 63 Year
  Sex: Female

DRUGS (1)
  1. GEMCITABINE HYDROCHLORIDE. [Suspect]
     Active Substance: GEMCITABINE HYDROCHLORIDE
     Indication: LUNG ADENOCARCINOMA
     Dosage: UNK, (FIRST TWO GEMCITABINE INFUSIONS IN PATIENT^S RIGHT ARM, WHEREAS THE MOST RECENT INFUSION WAS A

REACTIONS (7)
  - Erythema [Recovered/Resolved]
  - C-reactive protein increased [Recovering/Resolving]
  - Drug level above therapeutic [Unknown]
  - Breast pain [Unknown]
  - Breast tenderness [Recovered/Resolved]
  - Breast swelling [Recovering/Resolving]
  - Skin warm [Unknown]
